FAERS Safety Report 18086762 (Version 1)
Quarter: 2020Q3

REPORT INFORMATION
  Report Type: Spontaneous
  Country: US (occurrence: US)
  Receive Date: 20200728
  Receipt Date: 20200728
  Transmission Date: 20201103
  Serious: No
  Sender: FDA-Public Use
  Company Number: None

PATIENT
  Sex: Male

DRUGS (1)
  1. CLOZAPINE. [Suspect]
     Active Substance: CLOZAPINE
     Dates: start: 20200208, end: 20200218

REACTIONS (6)
  - Vomiting [None]
  - Pyrexia [None]
  - Blood pressure systolic increased [None]
  - Heart rate increased [None]
  - Leukocytosis [None]
  - Therapy cessation [None]

NARRATIVE: CASE EVENT DATE: 20200218
